FAERS Safety Report 19646227 (Version 3)
Quarter: 2022Q1

REPORT INFORMATION
  Report Type: Report from Study
  Country: DE (occurrence: DE)
  Receive Date: 20210802
  Receipt Date: 20220215
  Transmission Date: 20220424
  Serious: Yes (Death, Life-Threatening, Hospitalization, Other)
  Sender: FDA-Public Use
  Company Number: None

PATIENT
  Age: 55 Year
  Sex: Female
  Weight: 52.4 kg

DRUGS (5)
  1. ONDANSETRON [Suspect]
     Active Substance: ONDANSETRON
     Indication: Product used for unknown indication
     Dosage: 16 MG, QD
     Route: 065
     Dates: start: 20210317, end: 20210326
  2. CYTARABINE [Suspect]
     Active Substance: CYTARABINE
     Indication: Product used for unknown indication
     Dosage: 2000 MG/M2
     Route: 065
     Dates: start: 20210317
  3. POSACONAZOLE [Suspect]
     Active Substance: POSACONAZOLE
     Indication: Product used for unknown indication
     Dosage: 300 MG, QD
     Route: 065
     Dates: start: 20210204
  4. GILTERITINIB [Suspect]
     Active Substance: GILTERITINIB
     Indication: Product used for unknown indication
     Dosage: 80 MG
     Route: 065
     Dates: start: 20210324, end: 20210406
  5. DAUNORUBICIN [Suspect]
     Active Substance: DAUNORUBICIN
     Indication: Product used for unknown indication
     Dosage: 60 MG/M2
     Route: 065
     Dates: start: 20210319

REACTIONS (19)
  - Left atrial hypertrophy [Unknown]
  - Electrocardiogram QT prolonged [Not Recovered/Not Resolved]
  - Respiratory failure [Not Recovered/Not Resolved]
  - Herpes simplex [Unknown]
  - Organ failure [Not Recovered/Not Resolved]
  - Electrocardiogram ST segment depression [Unknown]
  - Atypical pneumonia [Not Recovered/Not Resolved]
  - Ejection fraction decreased [Not Recovered/Not Resolved]
  - Staphylococcal infection [Not Recovered/Not Resolved]
  - Electrocardiogram PR shortened [Unknown]
  - Pulmonary oedema [Not Recovered/Not Resolved]
  - Tachycardia [Not Recovered/Not Resolved]
  - Pleural effusion [Unknown]
  - Lung opacity [Unknown]
  - Lung infiltration [Unknown]
  - Respiratory disorder [Unknown]
  - Cardiac dysfunction [Not Recovered/Not Resolved]
  - Cardiogenic shock [Fatal]
  - Septic shock [Fatal]

NARRATIVE: CASE EVENT DATE: 20210324
